FAERS Safety Report 5675220-9 (Version None)
Quarter: 2008Q1

REPORT INFORMATION
  Report Type: 
  Country: None (occurrence: None)
  Receive Date: 20080320
  Receipt Date: 20080318
  Transmission Date: 20080703
  Serious: Yes (Hospitalization)
  Sender: FDA-Public Use
  Company Number: US-BAXTER-2008BH002308

PATIENT
  Age: 71 Year
  Sex: Male

DRUGS (2)
  1. HEPARIN SODIUM [Suspect]
     Indication: CATHETERISATION CARDIAC
     Route: 013
     Dates: start: 20071119, end: 20071119
  2. HEPARIN SODIUM [Suspect]
     Route: 013
     Dates: start: 20071119, end: 20071119

REACTIONS (6)
  - CEREBRAL THROMBOSIS [None]
  - DRUG INEFFECTIVE [None]
  - DYSARTHRIA [None]
  - FACIAL PALSY [None]
  - PHARMACEUTICAL PRODUCT COMPLAINT [None]
  - SPEECH DISORDER [None]
